FAERS Safety Report 12768547 (Version 3)
Quarter: 2016Q4

REPORT INFORMATION
  Report Type: Spontaneous
  Country: JP (occurrence: JP)
  Receive Date: 20160921
  Receipt Date: 20161006
  Transmission Date: 20170207
  Serious: No
  Sender: FDA-Public Use
  Company Number: JP-009507513-1609JPN010127

PATIENT

DRUGS (2)
  1. REBETOL [Suspect]
     Active Substance: RIBAVIRIN
     Dosage: DAILY DOSAGE UNKNOWN
     Route: 048
  2. SOVALDI [Suspect]
     Active Substance: SOFOSBUVIR
     Dosage: DAILY DOSAGE UNKNOWN
     Route: 048

REACTIONS (25)
  - Cholelithiasis [Unknown]
  - Infection reactivation [Unknown]
  - Cough [Unknown]
  - Pruritus [Unknown]
  - Dyspnoea [Unknown]
  - Anaemia [Unknown]
  - Palpitations [Unknown]
  - Influenza [Unknown]
  - Abdominal pain [Unknown]
  - Dyspepsia [Unknown]
  - Vomiting [Unknown]
  - Weight decreased [Unknown]
  - Dizziness [Unknown]
  - Gingival swelling [Unknown]
  - Malaise [Unknown]
  - Decreased appetite [Unknown]
  - Headache [Unknown]
  - Diarrhoea [Unknown]
  - Dermatophytosis of nail [Unknown]
  - Abscess neck [Unknown]
  - Nasopharyngitis [Unknown]
  - Oral herpes [Unknown]
  - Oropharyngeal pain [Unknown]
  - Stomatitis [Unknown]
  - Rhinorrhoea [Unknown]
